FAERS Safety Report 9240191 (Version 1)
Quarter: 2013Q2

REPORT INFORMATION
  Report Type: Spontaneous
  Country: US (occurrence: None)
  Receive Date: 20130418
  Receipt Date: 20130418
  Transmission Date: 20140414
  Serious: No
  Sender: FDA-Public Use
  Company Number: None

PATIENT
  Age: 23 Year
  Sex: Female
  Weight: 71.4 kg

DRUGS (1)
  1. DEPO- PROVERA CONTRACEPTIVE [Suspect]
     Indication: CONTRACEPTION
     Dosage: EVERY 12-13 WEEKS
     Route: 030
     Dates: start: 20110413, end: 20130408

REACTIONS (3)
  - Nausea [None]
  - Urticaria [None]
  - Pruritus [None]
